FAERS Safety Report 17319573 (Version 2)
Quarter: 2020Q1

REPORT INFORMATION
  Report Type: Report from Study
  Country: US (occurrence: US)
  Receive Date: 20200125
  Receipt Date: 20200128
  Transmission Date: 20200409
  Serious: Yes (Hospitalization)
  Sender: FDA-Public Use
  Company Number: US-ROCHE-2530843

PATIENT
  Sex: Female

DRUGS (11)
  1. GUAIFENESIN. [Concomitant]
     Active Substance: GUAIFENESIN
     Dosage: TAKE 600 MG BY MOUTH 2 TIMES DAILY
     Route: 065
  2. LISINOPRIL. [Concomitant]
     Active Substance: LISINOPRIL
     Dosage: TAKE 5 MG BY MOUTH DAILY
     Route: 065
  3. PREDNISONE. [Concomitant]
     Active Substance: PREDNISONE
     Dosage: TAKE 5 MG BY MOUTH DAILY
     Route: 065
  4. ALBUTEROL [SALBUTAMOL] [Concomitant]
     Active Substance: ALBUTEROL
     Dosage: 90 MCG INHALE 2 PUFFS INTO THE LUNGS EVERY 4 HOURS AS NEEDED.
     Route: 065
  5. VITAMIN D [ERGOCALCIFEROL] [Concomitant]
     Active Substance: ERGOCALCIFEROL
  6. ESBRIET [Suspect]
     Active Substance: PIRFENIDONE
     Indication: IDIOPATHIC PULMONARY FIBROSIS
     Dosage: TAKE 1 TABLET BY MOUTH 3 TIMES A DAY
     Route: 048
  7. TESSALON [Concomitant]
     Active Substance: BENZONATATE
     Dosage: TAKE 200 MG BY MOUTH 3 TIMES DAILY
     Route: 065
  8. SYMBICORT [Concomitant]
     Active Substance: BUDESONIDE\FORMOTEROL FUMARATE DIHYDRATE
     Dosage: INHALE 2 PUFFS INTO LUNGS 2 TIMES DAILY
     Route: 065
  9. HELIUM;OXYGEN [Concomitant]
  10. ETANERCEPT [Concomitant]
     Active Substance: ETANERCEPT
     Dosage: 50 MG/ML INJECT INTO SKIN EVERY MONDAY
     Route: 065
  11. ACETAMINOPHEN. [Concomitant]
     Active Substance: ACETAMINOPHEN
     Dosage: TAKE 650 MG BY MOUTH EVERY 6 HOURS AS NEEDED FOR PAIN
     Route: 065

REACTIONS (1)
  - Influenza [Unknown]
